FAERS Safety Report 5131291-X (Version None)
Quarter: 2006Q4

REPORT INFORMATION
  Report Type: 
  Country: None (occurrence: None)
  Receive Date: 20061016
  Receipt Date: 20060905
  Transmission Date: 20070319
  Serious: Yes (Other)
  Sender: FDA-Public Use
  Company Number: 2006073170

PATIENT
  Age: 67 Year
  Sex: Female

DRUGS (4)
  1. NEURONTIN [Suspect]
     Indication: PAIN
     Dosage: 2 PILLS 4 OR 5 TIMES A DAY
     Dates: start: 20030101
  2. ABILIFY [Concomitant]
  3. AMITRIPTYLINE HCL [Concomitant]
  4. KLONOPIN [Concomitant]

REACTIONS (4)
  - AMNESIA [None]
  - BIPOLAR DISORDER [None]
  - HUNGER [None]
  - WEIGHT INCREASED [None]
